FAERS Safety Report 6609062-4 (Version None)
Quarter: 2010Q1

REPORT INFORMATION
  Report Type: 
  Country: None (occurrence: None)
  Receive Date: 20100224
  Receipt Date: 20100224
  Transmission Date: 20100710
  Serious: No
  Sender: FDA-Public Use
  Company Number: None

PATIENT
  Sex: Female
  Weight: 69.4003 kg

DRUGS (5)
  1. AMPHETAMINE AND DEXTROAMPHETAMINE SALTS [Suspect]
     Indication: ATTENTION DEFICIT/HYPERACTIVITY DISORDER
     Dosage: 1/2 TABLET FOUR TIMES DAILY PO
     Route: 048
     Dates: start: 20100219, end: 20100223
  2. PAXIL CR [Concomitant]
  3. PRILOSEC [Concomitant]
  4. ADDERALL XR 30 [Concomitant]
  5. ADDERALL XR 10 [Concomitant]

REACTIONS (5)
  - DIZZINESS [None]
  - HEADACHE [None]
  - PRODUCT QUALITY ISSUE [None]
  - SOMNOLENCE [None]
  - THINKING ABNORMAL [None]
